FAERS Safety Report 9476418 (Version 1)
Quarter: 2013Q3

REPORT INFORMATION
  Report Type: Report from Study
  Country: DE (occurrence: DE)
  Receive Date: 20130826
  Receipt Date: 20130826
  Transmission Date: 20140515
  Serious: Yes (Other)
  Sender: FDA-Public Use
  Company Number: DE-SANOFI-AVENTIS-2013SA083462

PATIENT
  Sex: Male
  Weight: 80 kg

DRUGS (5)
  1. LANTUS [Suspect]
     Indication: DIABETES MELLITUS
     Dosage: AT NIGHT.
     Route: 058
     Dates: start: 2009
  2. ANTIHYPERTENSIVES [Concomitant]
  3. OTHER LIPID MODIFYING AGENTS [Concomitant]
  4. PLATELET AGGREGATION INHIBITORS [Concomitant]
  5. METFORMIN [Concomitant]
     Indication: DIABETES MELLITUS
     Route: 048

REACTIONS (1)
  - Cerebrovascular accident [Unknown]
